FAERS Safety Report 6343836-2 (Version None)
Quarter: 2009Q3

REPORT INFORMATION
  Report Type: 
  Country: None (occurrence: None)
  Receive Date: 20090908
  Receipt Date: 20090831
  Transmission Date: 20100115
  Serious: Yes (Other)
  Sender: FDA-Public Use
  Company Number: PHHY2009IT37144

PATIENT
  Sex: Female

DRUGS (2)
  1. ZOMETA [Suspect]
     Indication: BREAST CANCER
     Dosage: 4 MG, QMO
     Dates: start: 20040101, end: 20070630
  2. ARIMIDEX [Concomitant]
     Dosage: 1 MG, UNK
     Route: 048
     Dates: start: 20040101, end: 20070131

REACTIONS (2)
  - MAXILLOFACIAL OPERATION [None]
  - OSTEONECROSIS [None]
